FAERS Safety Report 15365769 (Version 1)
Quarter: 2018Q3

REPORT INFORMATION
  Report Type: Spontaneous
  Country: US (occurrence: US)
  Receive Date: 20180831
  Receipt Date: 20180831
  Transmission Date: 20181010
  Serious: Yes (Hospitalization)
  Sender: FDA-Public Use
  Company Number: None

PATIENT
  Age: 69 Year
  Sex: Female
  Weight: 88.8 kg

DRUGS (2)
  1. CISPLATIN. [Suspect]
     Active Substance: CISPLATIN
     Indication: HYPONATRAEMIA
     Dates: end: 20180605
  2. GEMCITABINE HYDROCHLORIDE. [Suspect]
     Active Substance: GEMCITABINE HYDROCHLORIDE
     Dates: end: 20180605

REACTIONS (24)
  - Diarrhoea [None]
  - Clostridium difficile colitis [None]
  - Hypovolaemia [None]
  - Nausea [None]
  - Haemoglobin decreased [None]
  - Haematocrit decreased [None]
  - Protein urine present [None]
  - Hyponatraemia [None]
  - Gastrooesophageal reflux disease [None]
  - Vulvovaginal pain [None]
  - Alanine aminotransferase increased [None]
  - Blood urine present [None]
  - Urinary tract infection [None]
  - Hypophagia [None]
  - Tumour invasion [None]
  - Vomiting [None]
  - Pain [None]
  - Urine leukocyte esterase positive [None]
  - Pyuria [None]
  - Gastroenteritis viral [None]
  - Abdominal pain lower [None]
  - Feeling abnormal [None]
  - Pelvic pain [None]
  - Blood alkaline phosphatase increased [None]

NARRATIVE: CASE EVENT DATE: 20180611
